FAERS Safety Report 24875077 (Version 1)
Quarter: 2025Q1

REPORT INFORMATION
  Report Type: Spontaneous
  Country: US (occurrence: US)
  Receive Date: 20250122
  Receipt Date: 20250122
  Transmission Date: 20250408
  Serious: Yes (Other)
  Sender: Hindustan Unilever
  Company Number: US-Hindustan Unilever Limited-2169570

PATIENT
  Age: 17 Year
  Sex: Male

DRUGS (1)
  1. DEGREE (ALUMINUM SESQUICHLOROHYDRATE) [Suspect]
     Active Substance: ALUMINUM SESQUICHLOROHYDRATE
     Dates: start: 20241206, end: 20241227

REACTIONS (9)
  - Application site pruritus [Unknown]
  - Endometrial scratching [Unknown]
  - Fungal infection [Unknown]
  - Dermatitis [Unknown]
  - Rash [Unknown]
  - Application site discolouration [Unknown]
  - Application site pain [Unknown]
  - Swelling [Unknown]
  - Application site vesicles [Unknown]

NARRATIVE: CASE EVENT DATE: 20241206
